FAERS Safety Report 10182719 (Version 1)
Quarter: 2014Q2

REPORT INFORMATION
  Report Type: Spontaneous
  Country: US (occurrence: None)
  Receive Date: 20140519
  Receipt Date: 20140519
  Transmission Date: 20141212
  Serious: Yes (Life-Threatening, Hospitalization)
  Sender: FDA-Public Use
  Company Number: None

PATIENT
  Age: 61 Year
  Sex: Male
  Weight: 248 kg

DRUGS (2)
  1. CARVEDILOL [Suspect]
     Indication: BLOOD PRESSURE INCREASED
     Route: 048
     Dates: start: 20140515
  2. CARVEDILOL [Suspect]
     Indication: HEART RATE DECREASED
     Route: 048
     Dates: start: 20140515

REACTIONS (2)
  - Myocardial infarction [None]
  - Product substitution issue [None]
